FAERS Safety Report 14081590 (Version 1)
Quarter: 2017Q4

REPORT INFORMATION
  Report Type: Spontaneous
  Country: US (occurrence: None)
  Receive Date: 20171013
  Receipt Date: 20171013
  Transmission Date: 20180321
  Serious: Yes (Death)
  Sender: FDA-Public Use
  Company Number: None

PATIENT
  Age: 88 Year
  Sex: Female

DRUGS (7)
  1. VOLTAREN [Concomitant]
     Active Substance: DICLOFENAC SODIUM
  2. CAPECITABINE GENENTECH [Suspect]
     Active Substance: CAPECITABINE
     Indication: RETINAL OEDEMA
     Dosage: Q28D   DROPS
     Dates: start: 20140528, end: 20170821
  3. SYNTHROID [Concomitant]
     Active Substance: LEVOTHYROXINE SODIUM
  4. VITAMIN D [Concomitant]
     Active Substance: CHOLECALCIFEROL
  5. TRAVATAN [Concomitant]
     Active Substance: TRAVOPROST
  6. LISINOPRIL. [Concomitant]
     Active Substance: LISINOPRIL
  7. WARFARIN [Concomitant]
     Active Substance: WARFARIN

REACTIONS (1)
  - Death [None]

NARRATIVE: CASE EVENT DATE: 20170821
